FAERS Safety Report 8363446-5 (Version None)
Quarter: 2012Q2

REPORT INFORMATION
  Report Type: 
  Country: None (occurrence: None)
  Receive Date: 20120516
  Receipt Date: 20120515
  Transmission Date: 20120825
  Serious: No
  Sender: FDA-Public Use
  Company Number: US-BAYER-2012-047425

PATIENT
  Sex: Female

DRUGS (5)
  1. CALCIUM D [Concomitant]
  2. B COMPLEX [B3,B6,B2,B1 HCL] [Concomitant]
  3. ESTRACE [Concomitant]
     Dosage: 0.5 MG
  4. VITAMIN D [Concomitant]
     Dosage: 10000 IU
  5. BETASERON [Suspect]
     Dosage: 0.3 MG, QOD
     Route: 058

REACTIONS (1)
  - TREMOR [None]
